FAERS Safety Report 22170510 (Version 1)
Quarter: 2023Q2

REPORT INFORMATION
  Report Type: Report from Study
  Country: CA (occurrence: CA)
  Receive Date: 20230404
  Receipt Date: 20230404
  Transmission Date: 20230721
  Serious: Yes (Death)
  Sender: FDA-Public Use
  Company Number: CA-BAYER-2023A042837

PATIENT
  Age: 94 Year
  Sex: Female

DRUGS (3)
  1. EYLEA [Suspect]
     Active Substance: AFLIBERCEPT
     Indication: Age-related macular degeneration
     Dosage: UNK, ONCE , SOLUTION FOR INJECTION (40MG/ML)
     Route: 031
     Dates: start: 20191206, end: 20191206
  2. EYLEA [Suspect]
     Active Substance: AFLIBERCEPT
     Dosage: UNK, SOLUTION FOR INJECTION (40MG/ML)
     Route: 031
     Dates: start: 20221222, end: 20221222
  3. EYLEA [Suspect]
     Active Substance: AFLIBERCEPT
     Dosage: UNK, SOLUTION FOR INJECTION (40MG/ML)
     Route: 031

REACTIONS (1)
  - Death [Fatal]
